FAERS Safety Report 20088637 (Version 1)
Quarter: 2021Q4

REPORT INFORMATION
  Report Type: Spontaneous
  Country: GB (occurrence: GB)
  Receive Date: 20211119
  Receipt Date: 20211119
  Transmission Date: 20220303
  Serious: Yes (Other)
  Sender: FDA-Public Use
  Company Number: GB-MHRA-EYC 00262835

PATIENT
  Age: 40 Year
  Sex: Male
  Weight: 91.16 kg

DRUGS (1)
  1. SERTRALINE HYDROCHLORIDE [Suspect]
     Active Substance: SERTRALINE HYDROCHLORIDE
     Indication: Anxiety
     Dosage: 50 MILLIGRAM
     Route: 048
     Dates: start: 20210811

REACTIONS (2)
  - Dysgeusia [Not Recovered/Not Resolved]
  - Mood swings [Unknown]

NARRATIVE: CASE EVENT DATE: 20211006
